FAERS Safety Report 6196820-6 (Version None)
Quarter: 2009Q2

REPORT INFORMATION
  Report Type: 
  Country: None (occurrence: None)
  Receive Date: 20090520
  Receipt Date: 20090507
  Transmission Date: 20091009
  Serious: Yes (Other)
  Sender: FDA-Public Use
  Company Number: BR-ROCHE-631862

PATIENT
  Sex: Male
  Weight: 57 kg

DRUGS (2)
  1. RIVOTRIL [Suspect]
     Indication: INSOMNIA
     Dosage: FREQUENCY: 1 TABLET / DAY, OTHER INDICATION: DEPRESSION
     Route: 048
     Dates: start: 20070101
  2. RESPIDON [Concomitant]
     Indication: DEPRESSION
     Dosage: FREQUENCY: 1 TABLET / DAY
     Route: 048

REACTIONS (5)
  - CARDIAC DISORDER [None]
  - NO ADVERSE EVENT [None]
  - NO THERAPEUTIC RESPONSE [None]
  - TESTICULAR NEOPLASM [None]
  - WEIGHT DECREASED [None]
